FAERS Safety Report 7198600-1 (Version None)
Quarter: 2010Q4

REPORT INFORMATION
  Report Type: 
  Country: None (occurrence: None)
  Receive Date: 20101227
  Receipt Date: 20101216
  Transmission Date: 20110411
  Serious: Yes (Hospitalization)
  Sender: FDA-Public Use
  Company Number: JP-JNJFOC-20100809037

PATIENT
  Sex: Male

DRUGS (3)
  1. REMICADE [Suspect]
     Indication: CROHN'S DISEASE
     Dosage: ONE INFUSION TOTAL
     Route: 042
  2. PENTASA [Suspect]
     Indication: CROHN'S DISEASE
  3. ELENTAL [Concomitant]
     Indication: CROHN'S DISEASE

REACTIONS (2)
  - COLONIC STENOSIS [None]
  - INTESTINAL OBSTRUCTION [None]
